FAERS Safety Report 10460010 (Version 5)
Quarter: 2014Q4

REPORT INFORMATION
  Report Type: Report from Study
  Country: GB (occurrence: GB)
  Receive Date: 20140917
  Receipt Date: 20141103
  Transmission Date: 20150528
  Serious: Yes (Other)
  Sender: FDA-Public Use
  Company Number: GB-ABBVIE-14P-167-1270287-00

PATIENT
  Age: 66 Year
  Sex: Female

DRUGS (3)
  1. HUMIRA [Suspect]
     Active Substance: ADALIMUMAB
     Indication: RHEUMATOID ARTHRITIS
     Route: 065
     Dates: start: 20140521
  2. METHOTREXATE [Suspect]
     Active Substance: METHOTREXATE
     Indication: RHEUMATOID ARTHRITIS
     Route: 065
  3. HYDROXYCHLOROQUINE [Suspect]
     Active Substance: HYDROXYCHLOROQUINE
     Indication: RHEUMATOID ARTHRITIS
     Route: 065

REACTIONS (14)
  - Fatigue [Recovered/Resolved]
  - White blood cell count decreased [Unknown]
  - Nasopharyngitis [Not Recovered/Not Resolved]
  - Wrist deformity [Recovered/Resolved]
  - Malaise [Unknown]
  - Rheumatoid arthritis [Recovered/Resolved]
  - Viral infection [Unknown]
  - Wrong technique in drug usage process [Unknown]
  - Feeling hot [Recovered/Resolved]
  - Hand deformity [Recovered/Resolved]
  - Pain [Recovered/Resolved]
  - Headache [Unknown]
  - Chills [Recovered/Resolved]
  - Cough [Not Recovered/Not Resolved]

NARRATIVE: CASE EVENT DATE: 201406
